FAERS Safety Report 16969458 (Version 1)
Quarter: 2019Q4

REPORT INFORMATION
  Report Type: Spontaneous
  Country: FR (occurrence: FR)
  Receive Date: 20191029
  Receipt Date: 20191029
  Transmission Date: 20200122
  Serious: Yes (Other)
  Sender: FDA-Public Use
  Company Number: FR-AMERICAN REGENT INC-2019002322

PATIENT
  Age: 50 Year
  Sex: Female

DRUGS (1)
  1. FERINJECT [Suspect]
     Active Substance: FERRIC CARBOXYMALTOSE
     Indication: IRON DEFICIENCY
     Dosage: 20 MILLILITER
     Route: 042

REACTIONS (4)
  - Hypotension [Unknown]
  - Hyperhidrosis [Unknown]
  - Respiratory distress [Unknown]
  - Rash [Unknown]

NARRATIVE: CASE EVENT DATE: 20190918
